FAERS Safety Report 4704299-3 (Version None)
Quarter: 2005Q2

REPORT INFORMATION
  Report Type: 
  Country: None (occurrence: None)
  Receive Date: 20050630
  Receipt Date: 20050622
  Transmission Date: 20051028
  Serious: Yes (Hospitalization)
  Sender: FDA-Public Use
  Company Number: 200511859JP

PATIENT
  Age: 74 Year
  Sex: Female

DRUGS (3)
  1. LANTUS [Suspect]
     Indication: DIABETES MELLITUS
  2. OPTIPEN (INSULIN PUMP) [Suspect]
     Indication: DIABETES MELLITUS
  3. PREDONINE [Concomitant]
     Indication: RHEUMATOID ARTHRITIS

REACTIONS (4)
  - ECHOCARDIOGRAM ABNORMAL [None]
  - ENDOCARDITIS [None]
  - INJECTION SITE INFECTION [None]
  - STAPHYLOCOCCAL INFECTION [None]
